FAERS Safety Report 17698371 (Version 4)
Quarter: 2021Q4

REPORT INFORMATION
  Report Type: Spontaneous
  Country: US (occurrence: US)
  Receive Date: 20200423
  Receipt Date: 20211006
  Transmission Date: 20220304
  Serious: No
  Sender: FDA-Public Use
  Company Number: US-PFIZER INC-2020159881

PATIENT
  Age: 84 Year
  Sex: Female

DRUGS (3)
  1. IBRANCE [Suspect]
     Active Substance: PALBOCICLIB
     Indication: Breast cancer female
     Dosage: 100 MG, CYCLIC (TAKE 1 CAPSULE BY MOUTH ONCE DAILY ON DAYS 1-21 THEN OFF ON DAYS 22-28)
     Route: 048
     Dates: start: 20200402
  2. AMLODIPINE BESYLATE [Concomitant]
     Active Substance: AMLODIPINE BESYLATE
     Dosage: UNK
  3. HYDROCHLOROTHIAZIDE [Concomitant]
     Active Substance: HYDROCHLOROTHIAZIDE
     Dosage: UNK

REACTIONS (5)
  - Skin irritation [Unknown]
  - Dry mouth [Unknown]
  - Insomnia [Unknown]
  - Asthenia [Unknown]
  - Fatigue [Unknown]
